FAERS Safety Report 9924934 (Version 1)
Quarter: 2014Q1

REPORT INFORMATION
  Report Type: Spontaneous
  Country: JP (occurrence: None)
  Receive Date: 20140221
  Receipt Date: 20140221
  Transmission Date: 20141002
  Serious: No
  Sender: FDA-Public Use
  Company Number: SYM-2014-17128

PATIENT
  Age: 74 Year
  Sex: Male

DRUGS (3)
  1. FLUOROURACIL (FLUOROURACIL) (FLUOROURACIL) [Suspect]
     Indication: OESOPHAGEAL CARCINOMA
     Dosage: 350MG/M2 INTRAVENOUS
     Route: 042
     Dates: start: 20100525, end: 20100528
  2. TAXOTERE (DOCETAXEL) (DOCETAXEL) [Suspect]
     Indication: OESOPHAGEAL CARCINOMA
     Dosage: 60MG/M2 EVERY THREE WEEKS
     Dates: start: 20100524, end: 20100524
  3. CISPLATIN [Suspect]
     Indication: OESOPHAGEAL CARCINOMA
     Route: 042
     Dates: start: 20100524, end: 20100528

REACTIONS (1)
  - Diverticulitis [None]
